FAERS Safety Report 24156748 (Version 1)
Quarter: 2024Q3

REPORT INFORMATION
  Report Type: Spontaneous
  Country: US (occurrence: None)
  Receive Date: 20240730
  Receipt Date: 20240730
  Transmission Date: 20241016
  Serious: Yes (unspecified)
  Sender: Public
  Company Number: None

PATIENT
  Age: 46 Year
  Sex: Female
  Weight: 80.55 kg

DRUGS (1)
  1. ZEPBOUND [Suspect]
     Active Substance: TIRZEPATIDE
     Indication: Overweight
     Dosage: OTHER FREQUENCY : ONE TIME PER WEEK;?OTHER ROUTE : INJECTION IN THIGH OR UPPER ARM;?
     Route: 050
     Dates: start: 20240203, end: 20240705

REACTIONS (6)
  - Abdominal pain [None]
  - Pain [None]
  - Arthralgia [None]
  - Neck pain [None]
  - Dyspnoea [None]
  - Blood pressure increased [None]

NARRATIVE: CASE EVENT DATE: 20240319
